FAERS Safety Report 25166646 (Version 2)
Quarter: 2025Q2

REPORT INFORMATION
  Report Type: Spontaneous
  Country: KR (occurrence: KR)
  Receive Date: 20250407
  Receipt Date: 20250507
  Transmission Date: 20250717
  Serious: Yes (Other)
  Sender: MYLAN
  Company Number: KR-MYLANLABS-2024M1107922

PATIENT
  Age: 69 Year
  Sex: Female

DRUGS (20)
  1. CLOZARIL [Suspect]
     Active Substance: CLOZAPINE
     Indication: Schizophrenia
     Dosage: 50 MILLIGRAM, QD (1 HS)
  2. LINAGLIPTIN\METFORMIN HYDROCHLORIDE [Concomitant]
     Active Substance: LINAGLIPTIN\METFORMIN HYDROCHLORIDE
     Dates: start: 20240812, end: 20241209
  3. LINAGLIPTIN\METFORMIN HYDROCHLORIDE [Concomitant]
     Active Substance: LINAGLIPTIN\METFORMIN HYDROCHLORIDE
     Dosage: UNK, BID (TWICE A DAY)
     Dates: start: 20241204
  4. ATORVASTATIN [Concomitant]
     Active Substance: ATORVASTATIN
  5. ATORVASTATIN [Concomitant]
     Active Substance: ATORVASTATIN
  6. CARVEDILOL [Concomitant]
     Active Substance: CARVEDILOL
     Dates: start: 20240812, end: 20241209
  7. CARVEDILOL [Concomitant]
     Active Substance: CARVEDILOL
     Dosage: UNK, BID
  8. PLAVIX [Concomitant]
     Active Substance: CLOPIDOGREL BISULFATE
  9. PLAVIX [Concomitant]
     Active Substance: CLOPIDOGREL BISULFATE
  10. ACETAMINOPHEN [Concomitant]
     Active Substance: ACETAMINOPHEN
     Dates: start: 20240821, end: 20240828
  11. COUGH NOS [Concomitant]
     Active Substance: UNSPECIFIED INGREDIENT
     Dates: start: 20240821, end: 20241030
  12. Mucopect [Concomitant]
     Dates: start: 20240821, end: 20240828
  13. Yuhan cefaclor sr [Concomitant]
     Dates: start: 20240821, end: 20240825
  14. ZITHROMAX [Concomitant]
     Active Substance: AZITHROMYCIN DIHYDRATE
     Dates: start: 20240826, end: 20240828
  15. ERDOSTEINE [Concomitant]
     Active Substance: ERDOSTEINE
     Dates: start: 20240902, end: 20241030
  16. OLANZAPINE [Concomitant]
     Active Substance: OLANZAPINE
     Dosage: 1 DOSAGE FORM, QD (1 HS)
  17. Diazepam daewon [Concomitant]
  18. Aripizole [Concomitant]
     Dosage: 1 DOSAGE FORM, QD (1 HS)
  19. Zanapam [Concomitant]
  20. Valeptol [Concomitant]
     Dosage: 1 DOSAGE FORM, QD (1 HS)

REACTIONS (3)
  - Neutropenia [Recovered/Resolved]
  - White blood cell count decreased [Recovered/Resolved]
  - Anaemia [Unknown]

NARRATIVE: CASE EVENT DATE: 20240927
